FAERS Safety Report 23053805 (Version 1)
Quarter: 2023Q4

REPORT INFORMATION
  Report Type: Report from Study
  Country: US (occurrence: US)
  Receive Date: 20231011
  Receipt Date: 20231011
  Transmission Date: 20240109
  Serious: Yes (Other)
  Sender: FDA-Public Use
  Company Number: US-002147023-NVSC2023US218059

PATIENT
  Age: 78 Year
  Sex: Male

DRUGS (1)
  1. LEQVIO [Suspect]
     Active Substance: INCLISIRAN SODIUM
     Indication: Product used for unknown indication
     Dosage: UNK
     Route: 058
     Dates: start: 202309

REACTIONS (5)
  - Syncope [Unknown]
  - Loss of consciousness [Unknown]
  - Dizziness [Unknown]
  - Head injury [Unknown]
  - Malaise [Unknown]

NARRATIVE: CASE EVENT DATE: 20230901
